FAERS Safety Report 18380036 (Version 1)
Quarter: 2020Q4

REPORT INFORMATION
  Report Type: Report from Study
  Country: GB (occurrence: GB)
  Receive Date: 20201013
  Receipt Date: 20201013
  Transmission Date: 20210114
  Serious: Yes (Other)
  Sender: FDA-Public Use
  Company Number: GB-SAMSUNG BIOEPIS-SB-2020-09296

PATIENT
  Sex: Male

DRUGS (2)
  1. IMRALDI [Suspect]
     Active Substance: ADALIMUMAB
     Indication: PULMONARY SARCOIDOSIS
     Route: 058
     Dates: start: 20190227
  2. IMRALDI [Suspect]
     Active Substance: ADALIMUMAB
     Route: 058

REACTIONS (3)
  - Off label use [Unknown]
  - Product use in unapproved indication [Unknown]
  - Pneumonia [Unknown]
